FAERS Safety Report 10398157 (Version 2)
Quarter: 2014Q3

REPORT INFORMATION
  Report Type: Spontaneous
  Country: US (occurrence: US)
  Receive Date: 20140821
  Receipt Date: 20140908
  Transmission Date: 20150326
  Serious: Yes (Other)
  Sender: FDA-Public Use
  Company Number: US-009507513-1408USA008012

PATIENT
  Age: 70 Year
  Sex: Female

DRUGS (2)
  1. TICE BCG [Suspect]
     Active Substance: BACILLUS CALMETTE-GUERIN SUBSTRAIN TICE LIVE ANTIGEN
     Indication: BLADDER CANCER
     Dosage: UNSPECIFIED/ONCE WEEKLY
     Dates: start: 20140513, end: 20140617
  2. INTRON A [Suspect]
     Active Substance: INTERFERON ALFA-2B
     Indication: BLADDER CANCER
     Dosage: UNSPECIFIED/ONCE WEEKLY
     Dates: start: 20140513, end: 20140617

REACTIONS (3)
  - Drug administration error [Unknown]
  - Bladder cancer [Recovering/Resolving]
  - Cancer surgery [Recovering/Resolving]

NARRATIVE: CASE EVENT DATE: 2014
